FAERS Safety Report 9069700 (Version 1)
Quarter: 2013Q1

REPORT INFORMATION
  Report Type: Report from Study
  Country: US (occurrence: US)
  Receive Date: 20130131
  Receipt Date: 20130131
  Transmission Date: 20140127
  Serious: No
  Sender: FDA-Public Use
  Company Number: US-ABBOTT-12P-163-1000369-00

PATIENT
  Age: 39 Year
  Sex: Female

DRUGS (5)
  1. HUMIRA [Suspect]
     Indication: CROHN^S DISEASE
     Route: 058
     Dates: start: 2005
  2. LYRICA [Concomitant]
     Indication: FIBROMYALGIA
  3. TRAZODONE [Concomitant]
     Indication: INSOMNIA
  4. FLEXERIL [Concomitant]
     Indication: MUSCLE RELAXANT THERAPY
  5. TRAMADOL [Concomitant]
     Indication: PAIN
     Dosage: 2-3 A DAY

REACTIONS (5)
  - Spondylitis [Unknown]
  - Injection site pain [Recovered/Resolved]
  - Device malfunction [Unknown]
  - Drug dose omission [Unknown]
  - Fibromyalgia [Unknown]
